FAERS Safety Report 16591003 (Version 3)
Quarter: 2019Q3

REPORT INFORMATION
  Report Type: Spontaneous
  Country: US (occurrence: US)
  Receive Date: 20190718
  Receipt Date: 20190823
  Transmission Date: 20191004
  Serious: No
  Sender: FDA-Public Use
  Company Number: US-PFIZER INC-2019303308

PATIENT
  Age: 83 Year
  Sex: Male
  Weight: 74.83 kg

DRUGS (2)
  1. ALPRAZOLAM. [Suspect]
     Active Substance: ALPRAZOLAM
     Indication: ANXIETY
     Dosage: 0.5 MG, TWICE DAILY (IN THE AM AND IN THE PM)
     Dates: start: 201902, end: 201907
  2. ALPRAZOLAM. [Suspect]
     Active Substance: ALPRAZOLAM
     Indication: SEIZURE
     Dosage: 1 MG, TWICE DAILY (IN THE MORNING AND IN THE EVENING)

REACTIONS (2)
  - Intentional product use issue [Unknown]
  - Somnolence [Recovered/Resolved]

NARRATIVE: CASE EVENT DATE: 201902
